FAERS Safety Report 10307000 (Version 2)
Quarter: 2014Q4

REPORT INFORMATION
  Report Type: Report from Study
  Country: JP (occurrence: JP)
  Receive Date: 20140715
  Receipt Date: 20141118
  Transmission Date: 20150528
  Serious: Yes (Death)
  Sender: FDA-Public Use
  Company Number: JP-ELI_LILLY_AND_COMPANY-JP201407004099

PATIENT
  Age: 61 Year
  Sex: Male
  Weight: 43 kg

DRUGS (18)
  1. SEIBULE [Concomitant]
     Active Substance: MIGLITOL
     Indication: TYPE 2 DIABETES MELLITUS
     Dosage: 50 MG, TID
     Route: 048
     Dates: start: 20111207, end: 20131111
  2. ALBUMIN TANNATE [Concomitant]
     Active Substance: ALBUMIN BOVINE\TANNIC ACID
     Dosage: 1 G, TID
     Dates: start: 20120111, end: 20131111
  3. LEVEMIR [Concomitant]
     Active Substance: INSULIN DETEMIR
     Indication: TYPE 2 DIABETES MELLITUS
     Dosage: 2 DF, EACH MORNING
     Route: 058
     Dates: start: 20111219, end: 20131111
  4. TALION                             /01587402/ [Concomitant]
     Active Substance: BEPOTASTINE
     Dosage: 10 MG, EACH EVENING
     Route: 048
     Dates: start: 20130719, end: 20131111
  5. ALDACTONE [Concomitant]
     Active Substance: SPIRONOLACTONE
     Dosage: UNK, OTHER
     Route: 048
     Dates: start: 20120111, end: 20131111
  6. AMINOLEBAN EN [Concomitant]
     Active Substance: UNSPECIFIED INGREDIENT
     Dosage: 50 G, TID
     Route: 048
     Dates: start: 20120111, end: 20131111
  7. DECADRON [Concomitant]
     Active Substance: DEXAMETHASONE
     Indication: TYPE 2 DIABETES MELLITUS
     Dosage: 0.25 MG, EACH EVENING
     Route: 048
     Dates: start: 20130510, end: 20131111
  8. NERIPROCT [Concomitant]
     Dosage: UNK UNK, BID
     Route: 062
     Dates: start: 20130719, end: 20131111
  9. PARIET [Concomitant]
     Active Substance: RABEPRAZOLE SODIUM
     Dosage: 10 MG, EACH MORNING
     Route: 048
     Dates: start: 20120111, end: 20131111
  10. URSO [Concomitant]
     Active Substance: URSODIOL
     Dosage: 200 G, TID
     Route: 048
     Dates: start: 20120111, end: 20131111
  11. LASIX [Concomitant]
     Active Substance: FUROSEMIDE
     Dosage: 80 MG, EACH MORNING
     Route: 048
     Dates: start: 20120111, end: 20131111
  12. LIVACT                             /01504901/ [Concomitant]
     Dosage: 4.15 G, TID
     Route: 048
     Dates: start: 20120111, end: 20131111
  13. WARFARIN [Concomitant]
     Active Substance: WARFARIN
     Dosage: 2.5 MG, EACH MORNING
     Route: 048
     Dates: start: 20111219, end: 20131111
  14. DULOXETINE HYDROCHLORIDE. [Suspect]
     Active Substance: DULOXETINE HYDROCHLORIDE
     Indication: DIABETIC NEUROPATHY
     Dosage: 20 MG, QD
     Route: 048
     Dates: start: 20130719, end: 20131017
  15. SHAKUYAKUKANZOTO [Concomitant]
     Active Substance: HERBALS
     Dosage: 2.5 G, TID
     Route: 048
     Dates: start: 20120111, end: 20131111
  16. PANCRELIPASE. [Concomitant]
     Active Substance: PANCRELIPASE
     Dosage: 600 G, TID
     Route: 048
     Dates: start: 20120111, end: 20131111
  17. LENDORMIN [Concomitant]
     Active Substance: BROTIZOLAM
     Dosage: 0.5 MG, EACH EVENING
     Route: 048
     Dates: start: 20111219, end: 20131111
  18. FLUITRAN [Concomitant]
     Active Substance: TRICHLORMETHIAZIDE
     Dosage: 4 MG, BID
     Route: 048
     Dates: start: 20120111, end: 20131111

REACTIONS (2)
  - Peritonitis bacterial [Fatal]
  - Hepatic failure [Fatal]

NARRATIVE: CASE EVENT DATE: 20131017
